FAERS Safety Report 8172870-5 (Version None)
Quarter: 2012Q1

REPORT INFORMATION
  Report Type: 
  Country: None (occurrence: None)
  Receive Date: 20120229
  Receipt Date: 20120229
  Transmission Date: 20120608
  Serious: Yes (Life-Threatening, Hospitalization)
  Sender: FDA-Public Use
  Company Number: None

PATIENT
  Age: 96 Year
  Sex: Female
  Weight: 59.3 kg

DRUGS (10)
  1. MULTIVITAMIN [Concomitant]
  2. GLIMEPIRIDE [Concomitant]
  3. POTASSIUM CHLORIDE [Concomitant]
  4. PRADAXA [Suspect]
     Indication: ATRIAL FIBRILLATION
     Dosage: 150 MG
     Route: 048
  5. FUROSEMIDE [Concomitant]
  6. METOPROLOL [Concomitant]
  7. VITAMIN B-12 [Concomitant]
  8. VITAMIN D [Concomitant]
  9. COENZYME Q10 [Concomitant]
  10. LEVOTHYROXINE SODIUM [Concomitant]

REACTIONS (5)
  - MELAENA [None]
  - COAGULOPATHY [None]
  - FALL [None]
  - ASTHENIA [None]
  - GASTROINTESTINAL HAEMORRHAGE [None]
